FAERS Safety Report 7420614-4 (Version None)
Quarter: 2011Q2

REPORT INFORMATION
  Report Type: 
  Country: None (occurrence: None)
  Receive Date: 20110408
  Receipt Date: 20110325
  Transmission Date: 20111010
  Serious: Yes (Other)
  Sender: FDA-Public Use
  Company Number: THQ2011A01585

PATIENT
  Age: 63 Year
  Sex: Female

DRUGS (2)
  1. PIOGLITAZONE HCL [Suspect]
     Indication: DIABETES MELLITUS
     Dosage: 30 MG PER ORAL; 45 MG (1 D) PER ORAL
     Route: 048
     Dates: end: 20071001
  2. PIOGLITAZONE HCL [Suspect]
     Indication: DIABETES MELLITUS
     Dosage: 30 MG PER ORAL; 45 MG (1 D) PER ORAL
     Route: 048
     Dates: start: 20051114, end: 20061101

REACTIONS (1)
  - BLADDER CANCER [None]
